FAERS Safety Report 9158239 (Version 1)
Quarter: 2013Q1

REPORT INFORMATION
  Report Type: Spontaneous
  Country: FR (occurrence: FR)
  Receive Date: 20130312
  Receipt Date: 20130312
  Transmission Date: 20140127
  Serious: Yes (Hospitalization, Disabling)
  Sender: FDA-Public Use
  Company Number: FR-ROCHE-1200624

PATIENT
  Age: 46 Year
  Sex: Male
  Weight: 65 kg

DRUGS (7)
  1. PEGASYS [Suspect]
     Indication: PRODUCT USED FOR UNKNOWN INDICATION
     Route: 058
     Dates: start: 200601, end: 200701
  2. RIBAVIRIN [Suspect]
     Indication: PRODUCT USED FOR UNKNOWN INDICATION
     Route: 048
     Dates: start: 200601, end: 200701
  3. SUSTIVA [Concomitant]
     Dosage: 0-0-1
     Route: 065
  4. TRUVADA [Concomitant]
  5. REBETOL [Concomitant]
     Dosage: 2-0-3
     Route: 065
  6. BACTRIM [Concomitant]
     Route: 065
     Dates: start: 200606
  7. DOLIPRANE [Concomitant]
     Indication: PAIN

REACTIONS (1)
  - Pulmonary arterial hypertension [Not Recovered/Not Resolved]
